FAERS Safety Report 8006898-2 (Version None)
Quarter: 2011Q4

REPORT INFORMATION
  Report Type: 
  Country: None (occurrence: None)
  Receive Date: 20111227
  Receipt Date: 20111219
  Transmission Date: 20120403
  Serious: Yes (Disabling, Other)
  Sender: FDA-Public Use
  Company Number: US-JNJFOC-20111203664

PATIENT
  Sex: Male
  Weight: 102.06 kg

DRUGS (3)
  1. LITHIUM [Concomitant]
     Indication: BIPOLAR DISORDER
     Dosage: 900MG AND  600MG/TABLET/300MG/3 IN AM  AND 2 IN PM
     Route: 048
  2. RISPERDAL [Suspect]
     Indication: BIPOLAR DISORDER
     Route: 048
  3. RISPERIDONE [Suspect]
     Indication: BIPOLAR DISORDER
     Route: 048

REACTIONS (12)
  - INTENTIONAL DRUG MISUSE [None]
  - INITIAL INSOMNIA [None]
  - ABNORMAL LOSS OF WEIGHT [None]
  - TARDIVE DYSKINESIA [None]
  - FEELING ABNORMAL [None]
  - BREAST MASS [None]
  - DIABETES MELLITUS [None]
  - WEIGHT INCREASED [None]
  - COMA [None]
  - MENTAL DISABILITY [None]
  - SUICIDE ATTEMPT [None]
  - GLOSSODYNIA [None]
